FAERS Safety Report 10242407 (Version 4)
Quarter: 2014Q3

REPORT INFORMATION
  Report Type: Spontaneous
  Country: JP (occurrence: JP)
  Receive Date: 20140617
  Receipt Date: 20140905
  Transmission Date: 20150326
  Serious: Yes (Hospitalization, Other)
  Sender: FDA-Public Use
  Company Number: JP-PFIZER INC-2014162872

PATIENT
  Age: 72 Year
  Sex: Male

DRUGS (4)
  1. REBAMIPIDE [Suspect]
     Active Substance: REBAMIPIDE
     Dosage: UNK, UNKNOWN FREQ
     Route: 048
  2. LIPITOR [Suspect]
     Active Substance: ATORVASTATIN CALCIUM
     Dosage: 10 MG, 1X/DAY
     Route: 048
  3. GASTER [Suspect]
     Active Substance: FAMOTIDINE
     Dosage: UNK, UNKNOWN FREQ
     Route: 048
  4. AMLODIPINE [Concomitant]
     Active Substance: AMLODIPINE BESYLATE
     Dosage: UNK
     Route: 048

REACTIONS (2)
  - Fall [Unknown]
  - Platelet count decreased [Unknown]
